FAERS Safety Report 21682899 (Version 3)
Quarter: 2023Q2

REPORT INFORMATION
  Report Type: Report from Study
  Country: US (occurrence: US)
  Receive Date: 20221205
  Receipt Date: 20230420
  Transmission Date: 20230722
  Serious: Yes (Hospitalization, Other)
  Sender: FDA-Public Use
  Company Number: US-ABBVIE-4192269

PATIENT
  Age: 72 Year
  Sex: Female
  Weight: 44.905 kg

DRUGS (1)
  1. HUMIRA [Suspect]
     Active Substance: ADALIMUMAB
     Indication: Crohn^s disease
     Dosage: CITRATE FREE?40 MILLIGRAM
     Route: 058

REACTIONS (13)
  - Fall [Unknown]
  - Hip fracture [Unknown]
  - Femur fracture [Unknown]
  - Gastrointestinal disorder [Not Recovered/Not Resolved]
  - Upper limb fracture [Unknown]
  - Cerebrovascular accident [Unknown]
  - Contusion [Unknown]
  - Blindness unilateral [Unknown]
  - Skin laceration [Unknown]
  - Pain [Unknown]
  - Splenic haemorrhage [Unknown]
  - Foot fracture [Unknown]
  - Unevaluable event [Unknown]

NARRATIVE: CASE EVENT DATE: 20221001
